FAERS Safety Report 8196989-8 (Version None)
Quarter: 2012Q1

REPORT INFORMATION
  Report Type: 
  Country: None (occurrence: None)
  Receive Date: 20120227
  Receipt Date: 20111115
  Transmission Date: 20120608
  Serious: Yes (Other)
  Sender: FDA-Public Use
  Company Number: 336136

PATIENT
  Age: 68 Year
  Sex: Female
  Weight: 95.7 kg

DRUGS (11)
  1. GLUCOPHAGE [Concomitant]
  2. CRESTOR [Concomitant]
  3. ASPIRIN [Concomitant]
  4. VICTOZA [Suspect]
     Indication: TYPE 2 DIABETES MELLITUS
     Dosage: 1.8 MG, QD, SUBCUTANEOUS 1.2 MG, QD, SUBCUTANEOUS
     Route: 058
     Dates: start: 20110301, end: 20110901
  5. VICTOZA [Suspect]
     Indication: TYPE 2 DIABETES MELLITUS
     Dosage: 1.8 MG, QD, SUBCUTANEOUS 1.2 MG, QD, SUBCUTANEOUS
     Route: 058
     Dates: start: 20110901, end: 20110930
  6. BYSTOLIC [Concomitant]
  7. MICARDIS [Concomitant]
  8. ALDACTONE [Concomitant]
  9. LOTENSIN /00498401/ (CAPTOPRIL) [Concomitant]
  10. LOVAZA [Concomitant]
  11. NIASPAN [Concomitant]

REACTIONS (2)
  - PANCREATITIS [None]
  - NIGHT SWEATS [None]
